FAERS Safety Report 4866645-X (Version None)
Quarter: 2005Q4

REPORT INFORMATION
  Report Type: 
  Country: None (occurrence: None)
  Receive Date: 20051221
  Receipt Date: 20051209
  Transmission Date: 20060501
  Serious: Yes (Other)
  Sender: FDA-Public Use
  Company Number: 2005S1000443

PATIENT
  Age: 10 Year
  Sex: Female
  Weight: 24.9932 kg

DRUGS (1)
  1. SORIATANE [Suspect]
     Indication: PSORIASIS
     Dosage: 10 MG; QD; PO
     Route: 048
     Dates: start: 20050518, end: 20051116

REACTIONS (3)
  - ARTHRALGIA [None]
  - DRUG INEFFECTIVE [None]
  - OSTEONECROSIS [None]
